FAERS Safety Report 19551232 (Version 14)
Quarter: 2023Q1

REPORT INFORMATION
  Report Type: Report from Study
  Country: JP (occurrence: None)
  Receive Date: 20210715
  Receipt Date: 20230118
  Transmission Date: 20230417
  Serious: Yes (Death, Hospitalization)
  Sender: FDA-Public Use
  Company Number: JP-ROCHE-2866567

PATIENT
  Age: 64 Year
  Sex: Male
  Weight: 94.1 kg

DRUGS (68)
  1. OBINUTUZUMAB [Suspect]
     Active Substance: OBINUTUZUMAB
     Indication: Follicular lymphoma
     Dosage: ON 17/APR/2021, RECEIVED MAINTENANCE DOSE (8 WEEK INTERVAL). 23/APR/2021: DATE OF MOST RECENT DOSE (
     Route: 042
     Dates: start: 20190911
  2. DIGOXIN [Concomitant]
     Active Substance: DIGOXIN
     Indication: Atrial fibrillation
  3. LOSARTAN POTASSIUM AND HYDROCHLOROTHIAZIDE [Concomitant]
     Active Substance: HYDROCHLOROTHIAZIDE\LOSARTAN POTASSIUM
     Indication: Hypertension
  4. FUROSEMIDE [Concomitant]
     Active Substance: FUROSEMIDE
     Indication: Hypertension
  5. BISOPROLOL FUMARATE [Concomitant]
     Active Substance: BISOPROLOL FUMARATE
     Indication: Hypertension
  6. ALLOPURINOL [Concomitant]
     Active Substance: ALLOPURINOL
     Indication: Hyperuricaemia
  7. POTASSIUM ASPARTATE ANHYDROUS [Concomitant]
     Active Substance: POTASSIUM ASPARTATE ANHYDROUS
     Indication: Hypokalaemia
  8. SULFAMETHOXAZOLE AND TRIMETHOPRIM [Concomitant]
     Active Substance: SULFAMETHOXAZOLE\TRIMETHOPRIM
     Indication: Infection prophylaxis
     Dates: start: 20191010, end: 20210122
  9. SULFAMETHOXAZOLE AND TRIMETHOPRIM [Concomitant]
     Active Substance: SULFAMETHOXAZOLE\TRIMETHOPRIM
     Dates: start: 20210226
  10. ACYCLOVIR [Concomitant]
     Active Substance: ACYCLOVIR
     Indication: Infection prophylaxis
     Dates: start: 20191107, end: 20210122
  11. ACYCLOVIR [Concomitant]
     Active Substance: ACYCLOVIR
     Dates: start: 20210226
  12. EDOXABAN TOSYLATE [Concomitant]
     Active Substance: EDOXABAN TOSYLATE
     Indication: Atrial fibrillation
     Dates: start: 20191128
  13. DIPHENHYDRAMINE HYDROCHLORIDE [Concomitant]
     Active Substance: DIPHENHYDRAMINE HYDROCHLORIDE
     Indication: Infusion related reaction
     Dates: start: 20190918, end: 20190918
  14. DIPHENHYDRAMINE HYDROCHLORIDE [Concomitant]
     Active Substance: DIPHENHYDRAMINE HYDROCHLORIDE
     Indication: Premedication
     Dates: start: 20191106, end: 20191106
  15. DIPHENHYDRAMINE HYDROCHLORIDE [Concomitant]
     Active Substance: DIPHENHYDRAMINE HYDROCHLORIDE
     Dates: start: 20191204, end: 20191204
  16. DIPHENHYDRAMINE HYDROCHLORIDE [Concomitant]
     Active Substance: DIPHENHYDRAMINE HYDROCHLORIDE
     Dates: start: 20200108, end: 20200108
  17. DIPHENHYDRAMINE HYDROCHLORIDE [Concomitant]
     Active Substance: DIPHENHYDRAMINE HYDROCHLORIDE
     Dates: start: 20200221, end: 20200221
  18. DIPHENHYDRAMINE HYDROCHLORIDE [Concomitant]
     Active Substance: DIPHENHYDRAMINE HYDROCHLORIDE
     Dates: start: 20200417, end: 20200417
  19. DIPHENHYDRAMINE HYDROCHLORIDE [Concomitant]
     Active Substance: DIPHENHYDRAMINE HYDROCHLORIDE
     Dates: start: 20200612, end: 20200612
  20. DIPHENHYDRAMINE HYDROCHLORIDE [Concomitant]
     Active Substance: DIPHENHYDRAMINE HYDROCHLORIDE
     Dates: start: 20200807, end: 20200807
  21. DIPHENHYDRAMINE HYDROCHLORIDE [Concomitant]
     Active Substance: DIPHENHYDRAMINE HYDROCHLORIDE
     Dates: start: 20201002, end: 20201002
  22. DIPHENHYDRAMINE HYDROCHLORIDE [Concomitant]
     Active Substance: DIPHENHYDRAMINE HYDROCHLORIDE
     Dates: start: 20201127, end: 20201127
  23. DIPHENHYDRAMINE HYDROCHLORIDE [Concomitant]
     Active Substance: DIPHENHYDRAMINE HYDROCHLORIDE
     Dates: start: 20210226, end: 20210226
  24. DIPHENHYDRAMINE HYDROCHLORIDE [Concomitant]
     Active Substance: DIPHENHYDRAMINE HYDROCHLORIDE
     Dates: start: 20210423, end: 20210423
  25. DIPHENHYDRAMINE HYDROCHLORIDE [Concomitant]
     Active Substance: DIPHENHYDRAMINE HYDROCHLORIDE
     Route: 048
     Dates: start: 20190911, end: 20190911
  26. DIPHENHYDRAMINE HYDROCHLORIDE [Concomitant]
     Active Substance: DIPHENHYDRAMINE HYDROCHLORIDE
     Route: 042
     Dates: start: 20190925, end: 20190925
  27. DIPHENHYDRAMINE HYDROCHLORIDE [Concomitant]
     Active Substance: DIPHENHYDRAMINE HYDROCHLORIDE
     Route: 048
     Dates: start: 20191009, end: 20191009
  28. VONOPRAZAN FUMARATE [Concomitant]
     Active Substance: VONOPRAZAN FUMARATE
     Indication: Gastritis
     Dates: start: 20210610
  29. AMOXICILLIN\CLAVULANATE POTASSIUM [Concomitant]
     Active Substance: AMOXICILLIN\CLAVULANATE POTASSIUM
     Indication: Infection prophylaxis
     Dates: start: 20210615
  30. AMOXICILLIN [Concomitant]
     Active Substance: AMOXICILLIN
     Indication: Infection prophylaxis
     Dates: start: 20210615
  31. CEFTRIAXONE SODIUM [Concomitant]
     Active Substance: CEFTRIAXONE SODIUM
     Indication: Infection prophylaxis
     Dates: start: 20210615, end: 20210615
  32. MICONAZOLE [Concomitant]
     Active Substance: MICONAZOLE
     Indication: Oesophageal candidiasis
     Dates: start: 20210610
  33. SODIUM HYALURONATE [Concomitant]
     Active Substance: HYALURONATE SODIUM
     Indication: Dry eye
  34. VITAMEDIN (JAPAN) [Concomitant]
     Indication: Fluid replacement
     Dates: start: 20210706, end: 20210710
  35. WARFARIN POTASSIUM [Concomitant]
     Active Substance: WARFARIN POTASSIUM
     Indication: Atrial fibrillation
     Dates: start: 20191127, end: 20191127
  36. APREPITANT [Concomitant]
     Active Substance: APREPITANT
     Indication: Prophylaxis of nausea and vomiting
     Dates: start: 20190912, end: 20190912
  37. APREPITANT [Concomitant]
     Active Substance: APREPITANT
     Dates: start: 20190913, end: 20190914
  38. APREPITANT [Concomitant]
     Active Substance: APREPITANT
     Dates: start: 20191009, end: 20191009
  39. APREPITANT [Concomitant]
     Active Substance: APREPITANT
     Dates: start: 20191010, end: 20191011
  40. APREPITANT [Concomitant]
     Active Substance: APREPITANT
     Dates: start: 20191106, end: 20191106
  41. APREPITANT [Concomitant]
     Active Substance: APREPITANT
     Dates: start: 20191107, end: 20191108
  42. APREPITANT [Concomitant]
     Active Substance: APREPITANT
     Dates: start: 20191204, end: 20191204
  43. APREPITANT [Concomitant]
     Active Substance: APREPITANT
     Dates: start: 20191205, end: 20191206
  44. APREPITANT [Concomitant]
     Active Substance: APREPITANT
     Dates: start: 20200108, end: 20200108
  45. APREPITANT [Concomitant]
     Active Substance: APREPITANT
     Dates: start: 20200109, end: 20200110
  46. APREPITANT [Concomitant]
     Active Substance: APREPITANT
     Dates: start: 20200221, end: 20200221
  47. APREPITANT [Concomitant]
     Active Substance: APREPITANT
     Dates: start: 20200222, end: 20200223
  48. URSODIOL [Concomitant]
     Active Substance: URSODIOL
     Indication: Hepatic function abnormal
     Dates: start: 20210122, end: 20210225
  49. URSODIOL [Concomitant]
     Active Substance: URSODIOL
     Dates: start: 20210226
  50. URSODIOL [Concomitant]
     Active Substance: URSODIOL
     Dates: start: 20210629
  51. METHYLPREDNISOLONE SODIUM SUCCINATE [Concomitant]
     Active Substance: METHYLPREDNISOLONE SODIUM SUCCINATE
     Indication: Premedication
     Dosage: CYCLE 1?DAY 1 (1)
     Route: 042
     Dates: start: 20190911, end: 20190911
  52. METHYLPREDNISOLONE SODIUM SUCCINATE [Concomitant]
     Active Substance: METHYLPREDNISOLONE SODIUM SUCCINATE
     Dosage: CYCLE 02?DAY 1
     Route: 042
     Dates: start: 20191009, end: 20191009
  53. PROPOFOL [Concomitant]
     Active Substance: PROPOFOL
  54. ACETAMINOPHEN [Concomitant]
     Active Substance: ACETAMINOPHEN
     Indication: Premedication
     Dosage: CYCLE 1 DAY 1 (1)
     Route: 048
     Dates: start: 20190911, end: 20190911
  55. ACETAMINOPHEN [Concomitant]
     Active Substance: ACETAMINOPHEN
     Dosage: CYCLE 1 DAY 8 (1)
     Route: 048
     Dates: start: 20190918, end: 20190918
  56. ACETAMINOPHEN [Concomitant]
     Active Substance: ACETAMINOPHEN
     Dosage: CYCLE 1 DAY 15 (1)
     Route: 048
     Dates: start: 20190925, end: 20190925
  57. ACETAMINOPHEN [Concomitant]
     Active Substance: ACETAMINOPHEN
     Dosage: CYCLE 02?DAY 1
     Route: 048
     Dates: start: 20191009, end: 20191009
  58. ACETAMINOPHEN [Concomitant]
     Active Substance: ACETAMINOPHEN
     Dosage: CYCLE 03?DAY 1
     Route: 048
     Dates: start: 20191106, end: 20191106
  59. ACETAMINOPHEN [Concomitant]
     Active Substance: ACETAMINOPHEN
     Dosage: CYCLE 04?DAY 1
     Route: 048
     Dates: start: 20191204, end: 20191204
  60. ACETAMINOPHEN [Concomitant]
     Active Substance: ACETAMINOPHEN
     Dosage: CYCLE 05?DAY 1
     Route: 048
     Dates: start: 20200108, end: 20200108
  61. ACETAMINOPHEN [Concomitant]
     Active Substance: ACETAMINOPHEN
     Dosage: CYCLE 06?DAY 1
     Route: 048
     Dates: start: 20200221, end: 20200221
  62. ACETAMINOPHEN [Concomitant]
     Active Substance: ACETAMINOPHEN
     Dosage: MAINTENANCE?WEEK 01
     Route: 048
     Dates: start: 20200417, end: 20200417
  63. ACETAMINOPHEN [Concomitant]
     Active Substance: ACETAMINOPHEN
     Dosage: MAINTENANCE?WEEK 09
     Route: 048
     Dates: start: 20200612, end: 20200612
  64. ACETAMINOPHEN [Concomitant]
     Active Substance: ACETAMINOPHEN
     Dosage: MAINTENANCE?WEEK 17
     Route: 048
     Dates: start: 20200807, end: 20200807
  65. ACETAMINOPHEN [Concomitant]
     Active Substance: ACETAMINOPHEN
     Dosage: MAINTENANCE?WEEK 25
     Route: 048
     Dates: start: 20201002, end: 20201002
  66. ACETAMINOPHEN [Concomitant]
     Active Substance: ACETAMINOPHEN
     Dosage: MAINTENANCE?WEEK 33
     Route: 048
     Dates: start: 20201127, end: 20201127
  67. ACETAMINOPHEN [Concomitant]
     Active Substance: ACETAMINOPHEN
     Dosage: MAINTENANCE?WEEK 41
     Route: 048
     Dates: start: 20210226, end: 20210226
  68. ACETAMINOPHEN [Concomitant]
     Active Substance: ACETAMINOPHEN
     Dosage: MAINTENANCE?WEEK 49
     Route: 048
     Dates: start: 20210423, end: 20210423

REACTIONS (2)
  - Cholangiocarcinoma [Fatal]
  - Cholangitis acute [Recovered/Resolved]

NARRATIVE: CASE EVENT DATE: 20210629
